FAERS Safety Report 18740438 (Version 18)
Quarter: 2022Q1

REPORT INFORMATION
  Report Type: Spontaneous
  Country: IN (occurrence: IN)
  Receive Date: 20210114
  Receipt Date: 20220207
  Transmission Date: 20220423
  Serious: Yes (Hospitalization, Other)
  Sender: FDA-Public Use
  Company Number: IN-PFIZER INC-2021019761

PATIENT
  Age: 48 Year
  Sex: Female
  Weight: 70 kg

DRUGS (20)
  1. CRIZOTINIB [Suspect]
     Active Substance: CRIZOTINIB
     Indication: Non-small cell lung cancer stage IV
     Dosage: 250 MG, 1X/DAY
     Route: 048
     Dates: start: 20200801, end: 20211123
  2. CRIZOTINIB [Suspect]
     Active Substance: CRIZOTINIB
     Dosage: 250 MG, 2X/DAY
     Route: 048
     Dates: start: 20200802
  3. CRIZOTINIB [Suspect]
     Active Substance: CRIZOTINIB
     Dosage: 250 MG, 2X/DAY
     Route: 048
     Dates: start: 20200828, end: 202111
  4. CRIZOTINIB [Suspect]
     Active Substance: CRIZOTINIB
     Dosage: 200 MG, 2X/DAY
     Route: 048
     Dates: start: 20210830
  5. DEXAMETHASONE [Concomitant]
     Active Substance: DEXAMETHASONE
     Dosage: 8 MG
     Route: 042
  6. RANITIDINE HYDROCHLORIDE [Concomitant]
     Active Substance: RANITIDINE HYDROCHLORIDE
     Dosage: 100 MG
     Route: 042
  7. GRANISET [Concomitant]
     Dosage: UNK
     Route: 042
  8. PREDNISOLONE [Concomitant]
     Active Substance: PREDNISOLONE
     Dosage: UNK
  9. LEVETIRACETAM [Concomitant]
     Active Substance: LEVETIRACETAM
     Dosage: 750 MG, 2X/DAY
  10. FUROSEMIDE\SPIRONOLACTONE [Concomitant]
     Active Substance: FUROSEMIDE\SPIRONOLACTONE
     Dosage: 25 MG (HALF TAB OF 50 MG), 1X/DAY
  11. FORACORT FORTE [Concomitant]
     Dosage: 2 PUFFS,  2X/DAY
  12. LEVOTHYROXINE [Concomitant]
     Active Substance: LEVOTHYROXINE
     Dosage: 25 UG, 1X/DAY
  13. LIDOCAINE [Concomitant]
     Active Substance: LIDOCAINE
     Dosage: UNK, 3X/DAY
  14. FEBUXOSTAT [Concomitant]
     Active Substance: FEBUXOSTAT
     Dosage: 40 MG, 1X/DAY FOR 1 MONTH
  15. ACYCLOVIR [Concomitant]
     Active Substance: ACYCLOVIR
     Dosage: UNK
  16. MEGEETRON [Concomitant]
     Dosage: 160 MG, 1X/DAY FOR 1 MONTH
  17. RAZO [Concomitant]
     Dosage: 1 DF (1 TABLET), 2X/DAY
  18. BETAHISTINE HYDROCHLORIDE [Concomitant]
     Active Substance: BETAHISTINE HYDROCHLORIDE
     Dosage: UNK, 4X/DAY
  19. IDROMET [Concomitant]
     Dosage: UNK
  20. IDROMET [Concomitant]
     Dosage: 6 MG, CYCLIC (EVERY THREE MONTHS)
     Dates: start: 20210827

REACTIONS (29)
  - Vertigo [Unknown]
  - Syncope [Unknown]
  - Heart rate decreased [Unknown]
  - Swelling face [Unknown]
  - Periorbital swelling [Unknown]
  - Mouth ulceration [Unknown]
  - Peripheral swelling [Unknown]
  - Hypoaesthesia [Unknown]
  - Virilism [Unknown]
  - Sinus arrest [Unknown]
  - Hyperkalaemia [Unknown]
  - Adrenal insufficiency [Unknown]
  - Liver function test increased [Recovering/Resolving]
  - Uterine leiomyoma [Unknown]
  - Neoplasm progression [Unknown]
  - Bradyarrhythmia [Unknown]
  - Extrasystoles [Unknown]
  - Hirsutism [Unknown]
  - Mean cell haemoglobin concentration decreased [Recovered/Resolved]
  - Monocyte percentage increased [Recovered/Resolved]
  - Lymphocyte percentage decreased [Unknown]
  - Haemoglobin decreased [Recovered/Resolved]
  - Blood pressure diastolic increased [Unknown]
  - Transaminases increased [Unknown]
  - Back pain [Unknown]
  - Oedema peripheral [Unknown]
  - Blood uric acid increased [Unknown]
  - Drug intolerance [Unknown]
  - Hepatic enzyme increased [Unknown]

NARRATIVE: CASE EVENT DATE: 20210827
